FAERS Safety Report 12223669 (Version 1)
Quarter: 2016Q1

REPORT INFORMATION
  Report Type: Other
  Country: GB (occurrence: GB)
  Receive Date: 20160330
  Receipt Date: 20160330
  Transmission Date: 20160526
  Serious: Yes (Life-Threatening, Other)
  Sender: FDA-Public Use
  Company Number: GB-MYLANLABS-2016M1012606

PATIENT

DRUGS (5)
  1. XARELTO [Concomitant]
     Active Substance: RIVAROXABAN
     Dosage: 10 MG, UNK
  2. ENALAPRIL [Concomitant]
     Active Substance: ENALAPRIL
     Dosage: UNK
  3. CLARITHROMYCIN. [Suspect]
     Active Substance: CLARITHROMYCIN
     Indication: INFECTION
     Dosage: 1 DF, BID
     Route: 048
     Dates: start: 20160303, end: 20160310
  4. DOXAZOSIN [Concomitant]
     Active Substance: DOXAZOSIN\DOXAZOSIN MESYLATE
     Dosage: UNK
  5. PREDNISOLONE. [Concomitant]
     Active Substance: PREDNISOLONE
     Dosage: UNK

REACTIONS (1)
  - Hypoglycaemia [Recovered/Resolved]

NARRATIVE: CASE EVENT DATE: 20160304
